FAERS Safety Report 24823923 (Version 2)
Quarter: 2025Q1

REPORT INFORMATION
  Report Type: Spontaneous
  Country: GB (occurrence: GB)
  Receive Date: 20250109
  Receipt Date: 20250126
  Transmission Date: 20250409
  Serious: Yes (Other)
  Sender: CIPLA
  Company Number: GB-AstraZeneca-CH-00769043A

PATIENT

DRUGS (2)
  1. GEFITINIB [Suspect]
     Active Substance: GEFITINIB
     Indication: Product used for unknown indication
     Route: 065
  2. TAGRISSO [Suspect]
     Active Substance: OSIMERTINIB
     Indication: Product used for unknown indication
     Route: 065

REACTIONS (12)
  - Pulmonary thrombosis [Unknown]
  - Weight decreased [Recovered/Resolved]
  - Palpitations [Unknown]
  - Dysphagia [Unknown]
  - Swelling face [Unknown]
  - Alopecia [Unknown]
  - Dry eye [Unknown]
  - Growth of eyelashes [Unknown]
  - Diarrhoea [Unknown]
  - Nail disorder [Unknown]
  - Malaise [Unknown]
  - Erythema [Unknown]
